FAERS Safety Report 6433566-0 (Version None)
Quarter: 2009Q4

REPORT INFORMATION
  Report Type: 
  Country: None (occurrence: None)
  Receive Date: 20091106
  Receipt Date: 20091106
  Transmission Date: 20100525
  Serious: Yes (Hospitalization)
  Sender: FDA-Public Use
  Company Number: None

PATIENT
  Age: 60 Year
  Sex: Male
  Weight: 110.2 kg

DRUGS (17)
  1. APRICOXIB - TRAGARA PHARMACEUTICALS [Suspect]
     Indication: NON-SMALL CELL LUNG CANCER METASTATIC
     Dosage: 400MG PO DAILY
     Route: 048
     Dates: start: 20090615, end: 20090722
  2. PEMETREXED [Suspect]
     Indication: NON-SMALL CELL LUNG CANCER METASTATIC
     Dosage: 500MG/M2 IV Q 21 DAYS
     Route: 042
     Dates: start: 20090706
  3. DIGOXIN [Concomitant]
  4. LISINOPRIL [Concomitant]
  5. EFFEXOR [Concomitant]
  6. ATROVENT [Concomitant]
  7. ALBUTEROL [Concomitant]
  8. NEXIUM [Concomitant]
  9. DEXAMETHASONE [Concomitant]
  10. ZOFRAN [Concomitant]
  11. COMPAZINE [Concomitant]
  12. OXYGEN [Concomitant]
  13. LASIX [Concomitant]
  14. TOPROL-XL [Concomitant]
  15. ALLEGRA [Concomitant]
  16. FLOVENT [Concomitant]
  17. CRESTOR [Concomitant]

REACTIONS (3)
  - DYSPNOEA [None]
  - DYSPNOEA EXERTIONAL [None]
  - OEDEMA PERIPHERAL [None]
